FAERS Safety Report 9976090 (Version 1)
Quarter: 2014Q1

REPORT INFORMATION
  Report Type: Spontaneous
  Country: GB (occurrence: GB)
  Receive Date: 20140306
  Receipt Date: 20140306
  Transmission Date: 20141002
  Serious: Yes (Life-Threatening, Hospitalization, Disabling, Other)
  Sender: FDA-Public Use
  Company Number: PHHY2014GB024218

PATIENT
  Age: 44 Year
  Sex: Female

DRUGS (3)
  1. BISOPROLOL [Suspect]
     Indication: ATRIAL FIBRILLATION
     Dosage: 2.5 MG, UNK
     Route: 048
     Dates: start: 20120928, end: 20140121
  2. LANSOPRAZOLE [Suspect]
     Dosage: 30 MG, UNK
     Route: 048
     Dates: start: 20120928, end: 20140121
  3. ANTIBIOTICS [Concomitant]

REACTIONS (1)
  - Tubulointerstitial nephritis [Recovering/Resolving]
